FAERS Safety Report 9625976 (Version 2)
Quarter: 2013Q4

REPORT INFORMATION
  Report Type: Spontaneous
  Country: US (occurrence: None)
  Receive Date: 20131011
  Receipt Date: 20131024
  Transmission Date: 20140711
  Serious: Yes (Hospitalization)
  Sender: FDA-Public Use
  Company Number: US-RRD-13-00024

PATIENT
  Age: 31 Year
  Sex: Male
  Weight: 92 kg

DRUGS (8)
  1. PANHEMATIN [Suspect]
     Indication: PORPHYRIA ACUTE
     Dosage: 276 MGL (276 MG 5 IN 1 WK), INTRAVENOUS DRIP
     Route: 041
     Dates: start: 2012
  2. DILAUDID (HYDROMORPHONE HYDROCHLORIDE)(UNKNOWN )(HYDROMORPHONE HYDROCHLORIDE) [Concomitant]
  3. ASPIRIN [Concomitant]
  4. ZOFRAN [Concomitant]
  5. ADVAIR DISKUS [Concomitant]
  6. PROAIR [Concomitant]
  7. OXYCODONE (OXYCODONE) (UNKNOWN) (OXYCODONE) [Concomitant]
  8. MIRALAX [Concomitant]

REACTIONS (11)
  - Extravasation [None]
  - Hypertension [None]
  - Paraesthesia [None]
  - Infusion site phlebitis [None]
  - Venous thrombosis [None]
  - Poor peripheral circulation [None]
  - Heart rate decreased [None]
  - Thrombophlebitis [None]
  - Phlebitis [None]
  - Chest pain [None]
  - Neck pain [None]
